FAERS Safety Report 10023411 (Version 1)
Quarter: 2014Q1

REPORT INFORMATION
  Report Type: Report from Study
  Country: JP (occurrence: JP)
  Receive Date: 20140320
  Receipt Date: 20140320
  Transmission Date: 20141002
  Serious: Yes (Hospitalization, Other)
  Sender: FDA-Public Use
  Company Number: JP-AMGEN-JPNCT2013092411

PATIENT
  Age: 60 Year
  Sex: Male
  Weight: 51 kg

DRUGS (11)
  1. DARBEPOETIN ALFA [Suspect]
     Indication: NEPHROGENIC ANAEMIA
     Dosage: 30 MUG, Q6WK
     Route: 040
     Dates: start: 20110705
  2. PARIET [Concomitant]
     Dosage: UNK
     Route: 048
  3. PLAVIX [Concomitant]
     Dosage: UNK
     Route: 048
  4. ACECOL                             /01277402/ [Concomitant]
     Dosage: UNK
     Route: 048
  5. ADALAT [Concomitant]
     Dosage: UNK
     Route: 048
  6. CONIEL [Concomitant]
     Dosage: UNK
     Route: 048
  7. MEVALOTIN [Concomitant]
     Dosage: UNK
     Route: 048
  8. KALIMATE [Concomitant]
     Dosage: UNK
     Route: 048
  9. RASILEZ [Concomitant]
     Dosage: UNK
     Route: 048
  10. CARDENALIN [Concomitant]
     Dosage: UNK
     Route: 048
  11. ZETIA [Concomitant]
     Dosage: UNK
     Route: 048

REACTIONS (2)
  - Renal artery stenosis [Recovered/Resolved]
  - Cardiac failure congestive [Recovering/Resolving]
